FAERS Safety Report 10020442 (Version 1)
Quarter: 2014Q1

REPORT INFORMATION
  Report Type: Spontaneous
  Country: US (occurrence: US)
  Receive Date: 20140319
  Receipt Date: 20140319
  Transmission Date: 20141002
  Serious: No
  Sender: FDA-Public Use
  Company Number: US-BIOGENIDEC-2014BI022572

PATIENT
  Sex: Male
  Weight: 94 kg

DRUGS (15)
  1. TECFIDERA [Suspect]
     Indication: PRODUCT USED FOR UNKNOWN INDICATION
     Route: 048
  2. PRILOSEC [Concomitant]
  3. ALLOPURINOL [Concomitant]
  4. REQUIP [Concomitant]
  5. DIAZEPAM [Concomitant]
  6. HYDROCO/APAP SOL 7.5-500 [Concomitant]
  7. COQ-10 [Concomitant]
  8. TRAZODONE [Concomitant]
  9. MEGA MULTIVI TAB MEN [Concomitant]
  10. PRISTIQ [Concomitant]
  11. CIALIS [Concomitant]
  12. SIMVASTATIN [Concomitant]
  13. PREDNISONE [Concomitant]
  14. METFORMIN [Concomitant]
  15. NOVOLOG MIX INJ 70/30 [Concomitant]

REACTIONS (6)
  - Feeling jittery [Unknown]
  - Nervousness [Unknown]
  - Depressed mood [Unknown]
  - Asthenia [Unknown]
  - Fatigue [Unknown]
  - Tremor [Unknown]
